FAERS Safety Report 8801840 (Version 1)
Quarter: 2012Q4

REPORT INFORMATION
  Report Type: 
  Country: US (occurrence: US)
  Receive Date: 20120921
  Receipt Date: 20120921
  Transmission Date: 20130627
  Serious: Yes (Hospitalization, Other)
  Sender: FDA-Public Use
  Company Number: PHHY2012US080571

PATIENT
  Age: 45 Year
  Sex: Male

DRUGS (9)
  1. LAMOTRIGINE [Suspect]
     Indication: FRONTAL LOBE EPILEPSY
     Dosage: 200 mg, BID
  2. VALPROIC ACID [Interacting]
     Dosage: 500 mg, BID
  3. VALPROIC ACID [Interacting]
     Dosage: 750 mg, BID
  4. VALPROIC ACID [Interacting]
     Dosage: 1000 mg, BID
  5. RISPERIDONE [Concomitant]
     Dosage: 3 mg, daily
  6. VITAMIN B1 [Concomitant]
     Dosage: 100 mg, daily
  7. VITAMIN D3 [Concomitant]
     Dosage: 2000 IU, daily
  8. TOPIRAMATE [Concomitant]
     Dosage: 150 mg, BID
  9. LORAZEPAM [Concomitant]
     Dosage: 0.5 mg, TID

REACTIONS (8)
  - Mental status changes [Recovering/Resolving]
  - Dysarthria [Recovering/Resolving]
  - Depressed level of consciousness [Recovering/Resolving]
  - Ataxia [Recovering/Resolving]
  - Hallucination [Recovering/Resolving]
  - Aggression [Recovering/Resolving]
  - Anticonvulsant drug level increased [Unknown]
  - Drug interaction [Unknown]
